FAERS Safety Report 8534684-3 (Version None)
Quarter: 2012Q3

REPORT INFORMATION
  Report Type: 
  Country: None (occurrence: None)
  Receive Date: 20120724
  Receipt Date: 20120716
  Transmission Date: 20120928
  Serious: Yes (Other)
  Sender: FDA-Public Use
  Company Number: US-GLAXOSMITHKLINE-A0982589A

PATIENT
  Age: 79 Year
  Sex: Male

DRUGS (5)
  1. JALYN [Suspect]
     Indication: NOCTURIA
     Dosage: 1CAP PER DAY
     Route: 048
     Dates: start: 20120622, end: 20120624
  2. LOSARTAN POTASSIUM [Concomitant]
  3. ASPIRIN [Concomitant]
  4. SIMVASTATIN [Concomitant]
  5. TRAMADOL HYDROCHLORIDE [Concomitant]

REACTIONS (1)
  - PENILE HAEMORRHAGE [None]
